FAERS Safety Report 10693956 (Version 2)
Quarter: 2015Q1

REPORT INFORMATION
  Report Type: Spontaneous
  Country: US (occurrence: US)
  Receive Date: 20150106
  Receipt Date: 20150206
  Transmission Date: 20150721
  Serious: No
  Sender: FDA-Public Use
  Company Number: US-PFIZER INC-2014355900

PATIENT
  Age: 68 Year
  Sex: Female

DRUGS (2)
  1. DISOPYRAMIDE PHOSPHATE. [Suspect]
     Active Substance: DISOPYRAMIDE PHOSPHATE
     Dosage: 100 MG, 3X/DAY
  2. CORN STARCH [Suspect]
     Active Substance: STARCH, CORN

REACTIONS (4)
  - Drug ineffective [Unknown]
  - Constipation [Unknown]
  - Abdominal distension [Unknown]
  - Abdominal pain upper [Unknown]
